FAERS Safety Report 5087243-1 (Version None)
Quarter: 2006Q3

REPORT INFORMATION
  Report Type: 
  Country: None (occurrence: None)
  Receive Date: 20060824
  Receipt Date: 20060815
  Transmission Date: 20061208
  Serious: Yes (Hospitalization, Disabling, Other)
  Sender: FDA-Public Use
  Company Number: PHBS2006EC12314

PATIENT
  Age: 33 Year
  Sex: Male

DRUGS (1)
  1. VOLTAREN [Suspect]
     Indication: PROCEDURAL PAIN
     Dosage: 75 MG/DAY
     Route: 030
     Dates: start: 20060603

REACTIONS (7)
  - CAUSTIC INJURY [None]
  - INJECTION SITE ATROPHY [None]
  - INJECTION SITE ERYTHEMA [None]
  - INJECTION SITE PAIN [None]
  - PLASTIC SURGERY [None]
  - SKIN GRAFT [None]
  - SKIN OPERATION [None]
